FAERS Safety Report 6678194-7 (Version None)
Quarter: 2010Q2

REPORT INFORMATION
  Report Type: 
  Country: None (occurrence: None)
  Receive Date: 20100408
  Receipt Date: 20100408
  Transmission Date: 20101027
  Serious: No
  Sender: FDA-Public Use
  Company Number: None

PATIENT
  Age: 63 Year
  Sex: Male
  Weight: 103.87 kg

DRUGS (1)
  1. SITAGLIPTIN [Suspect]
     Dates: start: 20091016, end: 20100225

REACTIONS (1)
  - RASH [None]
